FAERS Safety Report 9321965 (Version 1)
Quarter: 2013Q2

REPORT INFORMATION
  Report Type: Spontaneous
  Country: US (occurrence: None)
  Receive Date: 20130530
  Receipt Date: 20130530
  Transmission Date: 20140414
  Serious: Yes (Hospitalization)
  Sender: FDA-Public Use
  Company Number: None

PATIENT
  Age: 59 Year
  Sex: Female
  Weight: 85.9 kg

DRUGS (6)
  1. YERVOY [Suspect]
     Indication: MALIGNANT MELANOMA
     Dosage: Q3WEEKS
     Route: 042
     Dates: start: 20121212, end: 20130213
  2. SYLATRON [Suspect]
     Indication: MALIGNANT MELANOMA
     Dosage: 2MCG/KG THEN 1MCG/KG, Q1WEEK, SQ
     Route: 058
     Dates: start: 20121212, end: 20130329
  3. TOPAMAX [Concomitant]
  4. ATARAX [Concomitant]
  5. VICODIN [Concomitant]
  6. XANAX [Concomitant]

REACTIONS (1)
  - Hypopituitarism [None]
